FAERS Safety Report 17453657 (Version 1)
Quarter: 2020Q1

REPORT INFORMATION
  Report Type: Spontaneous
  Country: US (occurrence: US)
  Receive Date: 20200224
  Receipt Date: 20200224
  Transmission Date: 20200409
  Serious: No
  Sender: FDA-Public Use
  Company Number: US-VYERA PHARMACEUTICALS, LLC-2019VYE00038

PATIENT
  Age: 51 Year
  Sex: Male

DRUGS (9)
  1. CIPROFLOXACIN. [Concomitant]
     Active Substance: CIPROFLOXACIN
  2. LEUCOVORIN CALCIUM. [Concomitant]
     Active Substance: LEUCOVORIN CALCIUM
  3. TIVICAY [Concomitant]
     Active Substance: DOLUTEGRAVIR SODIUM
  4. ONDANSETRON [Concomitant]
     Active Substance: ONDANSETRON
  5. DARAPRIM [Suspect]
     Active Substance: PYRIMETHAMINE
     Indication: TOXOPLASMOSIS
     Dosage: 75 MG, 1X/DAY
     Route: 048
     Dates: start: 20190706
  6. TAMSULOSIN [Concomitant]
     Active Substance: TAMSULOSIN
  7. LEVETIRACETAM. [Concomitant]
     Active Substance: LEVETIRACETAM
  8. DESCOVY [Concomitant]
     Active Substance: EMTRICITABINE\TENOFOVIR ALAFENAMIDE FUMARATE
  9. SULFADIAZINE. [Concomitant]
     Active Substance: SULFADIAZINE

REACTIONS (2)
  - Product dose omission [Not Recovered/Not Resolved]
  - Dry mouth [Not Recovered/Not Resolved]

NARRATIVE: CASE EVENT DATE: 201908
